FAERS Safety Report 5205223-X (Version None)
Quarter: 2007Q1

REPORT INFORMATION
  Report Type: 
  Country: None (occurrence: None)
  Receive Date: 20070108
  Receipt Date: 20061221
  Transmission Date: 20070707
  Serious: Yes (Hospitalization)
  Sender: FDA-Public Use
  Company Number: 2006BI018062

PATIENT
  Age: 59 Year
  Sex: Female

DRUGS (3)
  1. AVONEX [Suspect]
     Indication: MULTIPLE SCLEROSIS
     Dosage: 30 UG; QW
     Dates: start: 19990201, end: 20031001
  2. AVONEX [Suspect]
     Indication: MULTIPLE SCLEROSIS
     Dosage: 30 UG; QW; IM
     Route: 030
     Dates: start: 20031001
  3. NUREFLEX [Concomitant]

REACTIONS (6)
  - COAGULATION FACTOR VIII LEVEL INCREASED [None]
  - GAIT DISTURBANCE [None]
  - HYPOTHYROIDISM [None]
  - MORTON'S NEUROMA [None]
  - PAIN [None]
  - PHLEBITIS [None]
